FAERS Safety Report 12678388 (Version 1)
Quarter: 2016Q3

REPORT INFORMATION
  Report Type: Spontaneous
  Country: US (occurrence: US)
  Receive Date: 20160823
  Receipt Date: 20160823
  Transmission Date: 20161109
  Serious: No
  Sender: FDA-Public Use
  Company Number: US-BAYER-2016-154948

PATIENT
  Age: 86 Year
  Sex: Female
  Weight: 67.12 kg

DRUGS (7)
  1. LIPITOR [Concomitant]
     Active Substance: ATORVASTATIN CALCIUM
  2. PLAVIX [Concomitant]
     Active Substance: CLOPIDOGREL BISULFATE
  3. SOTALOL. [Concomitant]
     Active Substance: SOTALOL
  4. GABAPENTIN. [Concomitant]
     Active Substance: GABAPENTIN
  5. MIRALAX [Suspect]
     Active Substance: POLYETHYLENE GLYCOL 3350
     Dosage: 1 DF, QD
     Route: 048
     Dates: start: 201601
  6. NEXIUM [Concomitant]
     Active Substance: ESOMEPRAZOLE MAGNESIUM
  7. TYLENOL COLD [PARACETAMOL] [Concomitant]
     Active Substance: ACETAMINOPHEN

REACTIONS (2)
  - Off label use [None]
  - Product use issue [None]

NARRATIVE: CASE EVENT DATE: 201601
